FAERS Safety Report 20153974 (Version 1)
Quarter: 2021Q4

REPORT INFORMATION
  Report Type: Spontaneous
  Country: CA (occurrence: CA)
  Receive Date: 20211207
  Receipt Date: 20211207
  Transmission Date: 20220304
  Serious: Yes (Other)
  Sender: FDA-Public Use
  Company Number: CA-SANOFI-00876395

PATIENT
  Sex: Male

DRUGS (2)
  1. LANTUS [Suspect]
     Active Substance: INSULIN GLARGINE
     Indication: Diabetes mellitus
     Dosage: UNK
  2. BASAGLAR [Suspect]
     Active Substance: INSULIN GLARGINE
     Dosage: UNK

REACTIONS (1)
  - Renal impairment [Not Recovered/Not Resolved]
